FAERS Safety Report 24276914 (Version 1)
Quarter: 2024Q3

REPORT INFORMATION
  Report Type: Spontaneous
  Country: SE (occurrence: SE)
  Receive Date: 20240903
  Receipt Date: 20240903
  Transmission Date: 20241017
  Serious: Yes (Other)
  Sender: MYLAN
  Company Number: SE-MYLANLABS-2024M1079543

PATIENT
  Sex: Male

DRUGS (2)
  1. ALPRAZOLAM [Suspect]
     Active Substance: ALPRAZOLAM
     Indication: Anxiety
     Dosage: (1/4 TABLET 2-3 TIMES DAILY)
     Route: 065
     Dates: start: 2003, end: 2022
  2. ALPRAZOLAM [Suspect]
     Active Substance: ALPRAZOLAM
     Indication: Nervousness

REACTIONS (14)
  - Speech disorder [Unknown]
  - Visual impairment [Unknown]
  - Hypoacusis [Unknown]
  - Nervous system disorder [Unknown]
  - Burning sensation [Unknown]
  - Dyskinesia [Unknown]
  - Loss of personal independence in daily activities [Unknown]
  - Tinnitus [Unknown]
  - Thermal burn [Unknown]
  - Pruritus [Unknown]
  - Skin exfoliation [Unknown]
  - Chills [Unknown]
  - Photosensitivity reaction [Unknown]
  - Wrong technique in product usage process [Unknown]
